FAERS Safety Report 8834851 (Version 1)
Quarter: 2012Q4

REPORT INFORMATION
  Report Type: Spontaneous
  Country: DK (occurrence: None)
  Receive Date: 20121009
  Receipt Date: 20121009
  Transmission Date: 20130627
  Serious: Yes (Life-Threatening)
  Sender: FDA-Public Use
  Company Number: 2012MA011977

PATIENT
  Age: 71 Year
  Sex: Female

DRUGS (3)
  1. CARBOPLATIN [Suspect]
     Indication: OVARIAN CANCER
     Route: 042
  2. AVASTIN [Concomitant]
  3. GEMCITABINE [Concomitant]

REACTIONS (6)
  - Loss of consciousness [None]
  - Hypotension [None]
  - Nausea [None]
  - Vomiting [None]
  - Hypersensitivity [None]
  - Shock [None]
